FAERS Safety Report 16342878 (Version 3)
Quarter: 2019Q2

REPORT INFORMATION
  Report Type: Report from Study
  Country: FR (occurrence: FR)
  Receive Date: 20190522
  Receipt Date: 20190621
  Transmission Date: 20190711
  Serious: Yes (Death, Other)
  Sender: FDA-Public Use
  Company Number: FR-JAZZ-2019-FR-006939

PATIENT

DRUGS (2)
  1. DEFITELIO [Suspect]
     Active Substance: DEFIBROTIDE SODIUM
     Indication: VENOOCCLUSIVE DISEASE
     Dosage: 28.57 MG/KG/DAY
     Dates: start: 20180312, end: 2018
  2. DEFITELIO [Suspect]
     Active Substance: DEFIBROTIDE SODIUM
     Dosage: 8.8 MG/KG/DAY
     Dates: start: 2018, end: 20180428

REACTIONS (2)
  - Acute respiratory distress syndrome [Fatal]
  - Lung infection [Unknown]

NARRATIVE: CASE EVENT DATE: 20190404
